FAERS Safety Report 4913861-4 (Version None)
Quarter: 2006Q1

REPORT INFORMATION
  Report Type: 
  Country: None (occurrence: None)
  Receive Date: 20060210
  Receipt Date: 20060202
  Transmission Date: 20060701
  Serious: Yes (Hospitalization)
  Sender: FDA-Public Use
  Company Number: 216559

PATIENT
  Age: 49 Year
  Sex: Female
  Weight: 102 kg

DRUGS (8)
  1. RAPTIVA [Suspect]
     Indication: LICHEN PLANUS
     Dosage: 100 MG, 1/WEEK, SUBCUTANEOUS
     Route: 058
     Dates: start: 20050623, end: 20050711
  2. AUGMENTIN '250' [Concomitant]
  3. VINELLE (ESTRADIOL) [Concomitant]
  4. NORVASC [Concomitant]
  5. HCTZ (HYDROCHLOROTHIAZIDE) [Concomitant]
  6. LEXAPRO [Concomitant]
  7. XANAX [Concomitant]
  8. SYNTHROID [Concomitant]

REACTIONS (9)
  - ASTHENIA [None]
  - CELLULITIS [None]
  - DIZZINESS [None]
  - FATIGUE [None]
  - LYMPHADENOPATHY [None]
  - MALAISE [None]
  - NIGHT SWEATS [None]
  - PAROTITIS [None]
  - RASH [None]
